FAERS Safety Report 9226251 (Version 1)
Quarter: 2013Q2

REPORT INFORMATION
  Report Type: Spontaneous
  Country: VE (occurrence: VE)
  Receive Date: 20130411
  Receipt Date: 20130411
  Transmission Date: 20140414
  Serious: Yes (Other)
  Sender: FDA-Public Use
  Company Number: VE-PFIZER INC-2013113392

PATIENT
  Age: 53 Year
  Sex: Male

DRUGS (1)
  1. LIPITOR [Suspect]
     Dosage: 80 MG, 1X/DAY

REACTIONS (3)
  - Diabetes mellitus [Not Recovered/Not Resolved]
  - Cardiac disorder [Not Recovered/Not Resolved]
  - Renal disorder [Not Recovered/Not Resolved]
